FAERS Safety Report 5080039-6 (Version None)
Quarter: 2006Q3

REPORT INFORMATION
  Report Type: 
  Country: None (occurrence: None)
  Receive Date: 20060810
  Receipt Date: 20060801
  Transmission Date: 20061208
  Serious: Yes (Other)
  Sender: FDA-Public Use
  Company Number: 2006094988

PATIENT
  Age: 60 Year
  Sex: Male
  Weight: 140.6151 kg

DRUGS (5)
  1. XANAX [Suspect]
     Indication: ANXIETY
     Dosage: 8 MG (2 MG, 4 IN1 D),
  2. OXYCODONE (OXYCODONE) [Concomitant]
  3. LEXAPRO [Concomitant]
  4. ANTICOAGULANTS (ANTITHROMBOTIC AGENTS) [Concomitant]
  5. ZYPREXA [Concomitant]

REACTIONS (1)
  - CHOLECYSTECTOMY [None]
